FAERS Safety Report 6292424-5 (Version None)
Quarter: 2009Q3

REPORT INFORMATION
  Report Type: 
  Country: None (occurrence: None)
  Receive Date: 20090731
  Receipt Date: 20090721
  Transmission Date: 20100115
  Serious: Yes (Other)
  Sender: FDA-Public Use
  Company Number: PHHY2009JP30313

PATIENT
  Age: 60 Year
  Sex: Female

DRUGS (3)
  1. ZOMETA [Suspect]
     Indication: BONE LESION
     Dosage: 4 MG
     Route: 042
     Dates: end: 20090707
  2. DECADRON                                /CAN/ [Concomitant]
  3. TAXANES [Concomitant]

REACTIONS (1)
  - OSTEONECROSIS [None]
